FAERS Safety Report 25451482 (Version 1)
Quarter: 2025Q2

REPORT INFORMATION
  Report Type: Report from Study
  Country: US (occurrence: US)
  Receive Date: 20250618
  Receipt Date: 20250618
  Transmission Date: 20250717
  Serious: Yes (Other)
  Sender: ABBVIE
  Company Number: US-ABBVIE-6331745

PATIENT
  Sex: Male

DRUGS (1)
  1. QULIPTA [Suspect]
     Active Substance: ATOGEPANT
     Indication: Migraine
     Route: 048

REACTIONS (3)
  - Sinus operation [Not Recovered/Not Resolved]
  - Cluster headache [Not Recovered/Not Resolved]
  - Infection [Unknown]
